FAERS Safety Report 13743059 (Version 1)
Quarter: 2017Q3

REPORT INFORMATION
  Report Type: Spontaneous
  Country: US (occurrence: US)
  Receive Date: 20170711
  Receipt Date: 20170711
  Transmission Date: 20171127
  Serious: No
  Sender: FDA-Public Use
  Company Number: US-NOVOPROD-550423

PATIENT
  Age: 64 Year
  Sex: Female

DRUGS (3)
  1. SAXENDA [Suspect]
     Active Substance: LIRAGLUTIDE
     Indication: OBESITY
     Dosage: 3 CLICKS
     Route: 058
     Dates: start: 201705
  2. SAXENDA [Suspect]
     Active Substance: LIRAGLUTIDE
     Dosage: 5 CLICKS
  3. SAXENDA [Suspect]
     Active Substance: LIRAGLUTIDE
     Dosage: 4 CLICKS

REACTIONS (4)
  - Arthralgia [Not Recovered/Not Resolved]
  - Wrong technique in product usage process [Unknown]
  - Muscle fatigue [Not Recovered/Not Resolved]
  - Pain in extremity [Not Recovered/Not Resolved]

NARRATIVE: CASE EVENT DATE: 20170602
